FAERS Safety Report 17539165 (Version 1)
Quarter: 2020Q1

REPORT INFORMATION
  Report Type: Spontaneous
  Country: US (occurrence: US)
  Receive Date: 20200306
  Receipt Date: 20200306
  Transmission Date: 20200409
  Serious: Yes (Life-Threatening, Hospitalization)
  Sender: FDA-Public Use
  Company Number: None

PATIENT
  Age: 72 Year
  Sex: Male
  Weight: 88.4 kg

DRUGS (1)
  1. METFORMIN (METFORMIN HCL 500MG TAB) [Suspect]
     Active Substance: METFORMIN HYDROCHLORIDE
     Indication: DIABETES MELLITUS
     Route: 048
     Dates: start: 20100121, end: 20200209

REACTIONS (6)
  - Palpitations [None]
  - Gastrointestinal haemorrhage [None]
  - Lactic acidosis [None]
  - Acute kidney injury [None]
  - Bradycardia [None]
  - Angina pectoris [None]

NARRATIVE: CASE EVENT DATE: 20200209
